FAERS Safety Report 19120371 (Version 1)
Quarter: 2021Q2

REPORT INFORMATION
  Report Type: Spontaneous
  Country: PL (occurrence: PL)
  Receive Date: 20210412
  Receipt Date: 20210412
  Transmission Date: 20210717
  Serious: Yes (Hospitalization, Other)
  Sender: FDA-Public Use
  Company Number: PL-ASTELLAS-2021US012532

PATIENT
  Age: 23 Year
  Sex: Female

DRUGS (3)
  1. TACROLIMUS. [Suspect]
     Active Substance: TACROLIMUS
     Indication: LIVER TRANSPLANT
     Route: 065
  2. AZATHIOPRINE. [Concomitant]
     Active Substance: AZATHIOPRINE
     Indication: LIVER TRANSPLANT
     Route: 065
  3. METHYLPREDNISOLONE. [Concomitant]
     Active Substance: METHYLPREDNISOLONE
     Indication: LIVER TRANSPLANT
     Dosage: 1 MG, EVERY OTHER DAY (EVERY 48 HOURS)
     Route: 065

REACTIONS (5)
  - Premature delivery [Unknown]
  - Epstein-Barr virus antibody positive [Unknown]
  - Maternal exposure during pregnancy [Unknown]
  - Cytomegalovirus test positive [Unknown]
  - Peritoneal neoplasm [Unknown]
